FAERS Safety Report 9232110 (Version 1)
Quarter: 2013Q2

REPORT INFORMATION
  Report Type: Other
  Country: DE (occurrence: DE)
  Receive Date: 20130415
  Receipt Date: 20130415
  Transmission Date: 20140414
  Serious: Yes (Hospitalization)
  Sender: FDA-Public Use
  Company Number: DE-WATSON-2013-06418

PATIENT
  Age: 15 Year
  Sex: Male

DRUGS (1)
  1. METOCLOPRAMIDE (UNKNOWN) [Suspect]
     Indication: NAUSEA
     Dosage: 20 GTT, DAILY
     Route: 065

REACTIONS (5)
  - Speech disorder [Unknown]
  - Diplopia [Unknown]
  - Headache [Unknown]
  - Hypokinesia [Unknown]
  - Vertigo [Unknown]
